FAERS Safety Report 8169889-7 (Version None)
Quarter: 2012Q1

REPORT INFORMATION
  Report Type: 
  Country: None (occurrence: None)
  Receive Date: 20120222
  Receipt Date: 20120207
  Transmission Date: 20120608
  Serious: Yes (Death)
  Sender: FDA-Public Use
  Company Number: DEXA20120003

PATIENT
  Age: 54 Year
  Sex: Male

DRUGS (1)
  1. DEXAMETHASONE [Suspect]
     Indication: STRIDOR
     Dosage: 24 MG, 3 IN 1 D,

REACTIONS (3)
  - POSTOPERATIVE WOUND COMPLICATION [None]
  - IMPAIRED HEALING [None]
  - INFECTIOUS PERITONITIS [None]
